FAERS Safety Report 24777715 (Version 1)
Quarter: 2024Q4

REPORT INFORMATION
  Report Type: Spontaneous
  Country: DE (occurrence: DE)
  Receive Date: 20241226
  Receipt Date: 20241226
  Transmission Date: 20250115
  Serious: Yes (Other)
  Sender: PURDUE
  Company Number: DE-SANDOZ-SDZ2024DE101057

PATIENT

DRUGS (4)
  1. HYDROMORPHONE HYDROCHLORIDE [Suspect]
     Active Substance: HYDROMORPHONE HYDROCHLORIDE
     Indication: Pain
     Dosage: UNK
     Route: 065
  2. ESKETAMINE [Concomitant]
     Active Substance: ESKETAMINE
     Indication: Product used for unknown indication
     Dosage: UNK
     Route: 065
     Dates: start: 20220428
  3. ESKETAMINE [Concomitant]
     Active Substance: ESKETAMINE
     Dosage: UNK
     Route: 065
     Dates: start: 20220502
  4. ESKETAMINE [Concomitant]
     Active Substance: ESKETAMINE
     Dosage: UNK
     Route: 065
     Dates: start: 20220514

REACTIONS (2)
  - Colitis [Unknown]
  - Diarrhoea [Unknown]

NARRATIVE: CASE EVENT DATE: 20220101
